FAERS Safety Report 26145529 (Version 2)
Quarter: 2025Q4

REPORT INFORMATION
  Report Type: Spontaneous
  Country: EU (occurrence: EU)
  Receive Date: 20251211
  Receipt Date: 20251218
  Transmission Date: 20260117
  Serious: Yes (Hospitalization)
  Sender: PFIZER
  Company Number: EU-MLMSERVICE-20251201-PI728074-00336-2

PATIENT
  Age: 64 Year
  Sex: Female

DRUGS (2)
  1. ZOLEDRONIC ACID [Suspect]
     Active Substance: ZOLEDRONIC ACID
     Indication: Metastases to bone
     Dosage: 5 MG, MONTHLY
     Route: 042
     Dates: start: 202103, end: 202411
  2. ZOLEDRONIC ACID [Suspect]
     Active Substance: ZOLEDRONIC ACID
     Indication: Breast cancer

REACTIONS (3)
  - Osteonecrosis of jaw [Recovered/Resolved]
  - Streptococcal infection [Recovered/Resolved]
  - Oral cavity fistula [Recovered/Resolved]

NARRATIVE: CASE EVENT DATE: 20240501
